FAERS Safety Report 8032909-4 (Version None)
Quarter: 2012Q1

REPORT INFORMATION
  Report Type: 
  Country: None (occurrence: None)
  Receive Date: 20120110
  Receipt Date: 20111228
  Transmission Date: 20120608
  Serious: No
  Sender: FDA-Public Use
  Company Number: US-ELI_LILLY_AND_COMPANY-US201012004458

PATIENT
  Sex: Female
  Weight: 45 kg

DRUGS (17)
  1. CLIMARA [Concomitant]
  2. MOBIC [Concomitant]
  3. FORTEO [Suspect]
     Dosage: 20 UG, DAILY (1/D)
     Route: 065
  4. FORTEO [Suspect]
     Dosage: 20 UG, QD
     Route: 065
  5. DUONEB [Concomitant]
  6. DURAGESIC-100 [Concomitant]
  7. FORTEO [Suspect]
     Indication: OSTEOPOROSIS
     Dosage: 20 UG, DAILY (1/D)
     Route: 065
     Dates: start: 20101201
  8. FORTEO [Suspect]
     Dosage: 20 UG, QD
     Route: 065
  9. PIRBUTEROL [Concomitant]
     Dosage: UNK, UNKNOWN
     Route: 065
  10. FORTEO [Suspect]
     Dosage: 20 UG, DAILY (1/D)
     Route: 065
  11. ASPIRIN [Concomitant]
  12. MULTI-VITAMIN [Concomitant]
  13. CALCIUM + VITAMIN D [Concomitant]
  14. FORTEO [Suspect]
     Dosage: 20 UG, QD
     Route: 065
     Dates: end: 20111028
  15. LIDODERM [Concomitant]
  16. VITAMIN D [Concomitant]
  17. OXYCODONE HCL [Concomitant]

REACTIONS (38)
  - DIZZINESS [None]
  - NAUSEA [None]
  - FATIGUE [None]
  - PAIN IN EXTREMITY [None]
  - FALL [None]
  - MUSCLE SPASMS [None]
  - VASCULAR INJURY [None]
  - RIB FRACTURE [None]
  - DYSURIA [None]
  - NERVE INJURY [None]
  - CONTUSION [None]
  - VOMITING PROJECTILE [None]
  - HAEMATURIA [None]
  - VISUAL ACUITY REDUCED [None]
  - RENAL DISORDER [None]
  - ARTHRALGIA [None]
  - PNEUMONIA [None]
  - MALAISE [None]
  - MUSCLE FATIGUE [None]
  - INJECTION SITE HAEMATOMA [None]
  - DRUG DOSE OMISSION [None]
  - NEPHROLITHIASIS [None]
  - MYALGIA [None]
  - PYREXIA [None]
  - OLIGURIA [None]
  - HYPERSENSITIVITY [None]
  - INJECTION SITE PAIN [None]
  - CONSTIPATION [None]
  - LETHARGY [None]
  - MUSCULAR WEAKNESS [None]
  - INJECTION SITE HAEMORRHAGE [None]
  - FEELING ABNORMAL [None]
  - FLATULENCE [None]
  - SPINAL FRACTURE [None]
  - OEDEMA PERIPHERAL [None]
  - COUGH [None]
  - PAIN [None]
  - ASTHENIA [None]
